FAERS Safety Report 14984268 (Version 1)
Quarter: 2018Q2

REPORT INFORMATION
  Report Type: Spontaneous
  Country: US (occurrence: US)
  Receive Date: 20180518
  Receipt Date: 20180518
  Transmission Date: 20180711
  Serious: Yes (Life-Threatening, Disabling)
  Sender: FDA-Public Use
  Company Number: None

PATIENT
  Age: 38 Year
  Sex: Female
  Weight: 67.5 kg

DRUGS (3)
  1. LEVOFLOXACIN 750 MG TAB FOR LEVAQUIN 750 MG TAB [Suspect]
     Active Substance: LEVOFLOXACIN SODIUM
     Indication: PNEUMONIA
     Dosage: ?          QUANTITY:5 DF DOSAGE FORM;?
     Dates: start: 20170128, end: 20170130
  2. LEVOFLOXACIN 750 MG TAB FOR LEVAQUIN 750 MG TAB [Suspect]
     Active Substance: LEVOFLOXACIN SODIUM
     Indication: URINARY TRACT INFECTION
     Dosage: ?          QUANTITY:5 DF DOSAGE FORM;?
     Dates: start: 20170128, end: 20170130
  3. IBUPROFEN. [Concomitant]
     Active Substance: IBUPROFEN

REACTIONS (15)
  - Depression [None]
  - Slow speech [None]
  - Anxiety [None]
  - Tendon pain [None]
  - Pain [None]
  - Respiratory rate decreased [None]
  - Disturbance in attention [None]
  - Pain in extremity [None]
  - Vessel puncture site bruise [None]
  - Peripheral swelling [None]
  - Arthralgia [None]
  - Gait disturbance [None]
  - Wheelchair user [None]
  - Paraesthesia [None]
  - Neuralgia [None]

NARRATIVE: CASE EVENT DATE: 20170130
